FAERS Safety Report 16764936 (Version 6)
Quarter: 2020Q1

REPORT INFORMATION
  Report Type: Spontaneous
  Country: JP (occurrence: JP)
  Receive Date: 20190903
  Receipt Date: 20200122
  Transmission Date: 20200409
  Serious: Yes (Death, Other)
  Sender: FDA-Public Use
  Company Number: JP-UCBSA-2019036711

PATIENT
  Age: 85 Year
  Sex: Female

DRUGS (5)
  1. E KEPPRA [Suspect]
     Active Substance: LEVETIRACETAM
     Indication: EPILEPSY
     Dosage: 1000 MG DAILY
     Route: 041
     Dates: start: 20190816, end: 20190822
  2. MONTELUKAST OD [Concomitant]
     Indication: PRODUCT USED FOR UNKNOWN INDICATION
  3. ARGATROBAN. [Concomitant]
     Active Substance: ARGATROBAN
     Indication: PANCYTOPENIA
  4. HEPARIN NA LOCK [Suspect]
     Active Substance: HEPARIN SODIUM
     Indication: PRODUCT USED FOR UNKNOWN INDICATION
     Dosage: 100INTERNATIONAL UNIT DAILY
     Route: 042
     Dates: start: 20190810, end: 20190822
  5. THEOPHYLLINE [Concomitant]
     Active Substance: THEOPHYLLINE ANHYDROUS
     Indication: PRODUCT USED FOR UNKNOWN INDICATION

REACTIONS (2)
  - Marasmus [Fatal]
  - Pancytopenia [Recovered/Resolved]

NARRATIVE: CASE EVENT DATE: 20190822
